FAERS Safety Report 25533042 (Version 1)
Quarter: 2025Q3

REPORT INFORMATION
  Report Type: Spontaneous
  Country: CN (occurrence: CN)
  Receive Date: 20250709
  Receipt Date: 20250709
  Transmission Date: 20251021
  Serious: Yes (Hospitalization, Other)
  Sender: ACCORD
  Company Number: None

PATIENT
  Age: 63 Year
  Sex: Male
  Weight: 51 kg

DRUGS (9)
  1. CISPLATIN [Suspect]
     Active Substance: CISPLATIN
     Indication: Lung neoplasm malignant
     Dosage: 40 MILLIGRAM, Q3W
     Dates: start: 20250123, end: 20250125
  2. ETOPOSIDE [Suspect]
     Active Substance: ETOPOSIDE
     Indication: Lung neoplasm malignant
     Dates: start: 20250101
  3. SERPLULIMAB [Suspect]
     Active Substance: SERPLULIMAB
     Indication: Lung neoplasm malignant
     Dosage: STRENGTH: 10 MG/ML, Q3W, IV DRIP
     Route: 042
     Dates: start: 20250101, end: 20250101
  4. NEDAPLATIN [Suspect]
     Active Substance: NEDAPLATIN
     Indication: Lung neoplasm malignant
     Dates: start: 20250101, end: 20250101
  5. SERPLULIMAB [Suspect]
     Active Substance: SERPLULIMAB
     Indication: Lung neoplasm malignant
     Dosage: STRENGTH: 10 MG/ML, 300 MILLIGRAM, Q3W, IV DRIP
     Route: 042
     Dates: start: 20250123, end: 20250123
  6. SERPLULIMAB [Suspect]
     Active Substance: SERPLULIMAB
     Indication: Lung neoplasm malignant
     Dosage: STRENGTH: 10 MG/ML, 300 MILLIGRAM, Q3W, IV DRIP
     Route: 042
     Dates: start: 20250225, end: 20250225
  7. ETOPOSIDE [Suspect]
     Active Substance: ETOPOSIDE
     Indication: Lung neoplasm malignant
     Dates: start: 20250123, end: 20250125
  8. ETOPOSIDE [Suspect]
     Active Substance: ETOPOSIDE
     Indication: Lung neoplasm malignant
     Dates: start: 20250225, end: 20250227
  9. CISPLATIN [Suspect]
     Active Substance: CISPLATIN
     Indication: Lung neoplasm malignant
     Dosage: 40 MILLIGRAM, Q3W
     Dates: start: 20250225, end: 20250227

REACTIONS (3)
  - Enteritis [Recovering/Resolving]
  - Renal impairment [Unknown]
  - Gastrointestinal disorder [Unknown]

NARRATIVE: CASE EVENT DATE: 20250101
